FAERS Safety Report 15125510 (Version 1)
Quarter: 2018Q3

REPORT INFORMATION
  Report Type: Spontaneous
  Country: US (occurrence: US)
  Receive Date: 20180710
  Receipt Date: 20180710
  Transmission Date: 20181010
  Serious: No
  Sender: FDA-Public Use
  Company Number: US-009507513-1806USA006075

PATIENT
  Sex: Male

DRUGS (2)
  1. BELSOMRA [Suspect]
     Active Substance: SUVOREXANT
     Indication: INSOMNIA
     Dosage: 1 DOSE, ONCE
     Route: 048
     Dates: start: 20180611, end: 20180611
  2. BELSOMRA [Suspect]
     Active Substance: SUVOREXANT
     Dosage: 1 DOSE, ONCE
     Route: 048
     Dates: start: 20180612, end: 20180612

REACTIONS (3)
  - Flatulence [Not Recovered/Not Resolved]
  - Ill-defined disorder [Not Recovered/Not Resolved]
  - Diarrhoea [Not Recovered/Not Resolved]

NARRATIVE: CASE EVENT DATE: 20180611
